FAERS Safety Report 13399894 (Version 1)
Quarter: 2017Q2

REPORT INFORMATION
  Report Type: Spontaneous
  Country: US (occurrence: US)
  Receive Date: 20170404
  Receipt Date: 20170404
  Transmission Date: 20170830
  Serious: Yes (Hospitalization)
  Sender: FDA-Public Use
  Company Number: None

PATIENT
  Age: 4 Year
  Sex: Female
  Weight: 16.3 kg

DRUGS (2)
  1. DEMEROL [Suspect]
     Active Substance: MEPERIDINE HYDROCHLORIDE
     Indication: ANAESTHESIA
     Route: 042
     Dates: start: 20170317, end: 20170317
  2. PROPOFOL 10MG/ML [Suspect]
     Active Substance: PROPOFOL
     Indication: ANAESTHESIA
     Dosage: 50MG CONTINUOUS INFUSION IV
     Route: 042
     Dates: start: 20170317, end: 20170317

REACTIONS (3)
  - Hypersensitivity [None]
  - Generalised erythema [None]
  - Urticaria [None]

NARRATIVE: CASE EVENT DATE: 20170317
